FAERS Safety Report 18027620 (Version 2)
Quarter: 2020Q3

REPORT INFORMATION
  Report Type: Spontaneous
  Country: US (occurrence: US)
  Receive Date: 20200715
  Receipt Date: 20200827
  Transmission Date: 20201103
  Serious: Yes (Disabling, Other)
  Sender: FDA-Public Use
  Company Number: NVSC2020US196691

PATIENT
  Age: 81 Year
  Sex: Female

DRUGS (1)
  1. BEOVU [Suspect]
     Active Substance: BROLUCIZUMAB-DBLL
     Indication: NEOVASCULAR AGE-RELATED MACULAR DEGENERATION
     Dosage: 6 MG, UNKNOWN (LEFT EYE)
     Route: 047
     Dates: start: 20200507

REACTIONS (3)
  - Visual impairment [Unknown]
  - Vitreous floaters [Unknown]
  - Vitritis [Recovering/Resolving]

NARRATIVE: CASE EVENT DATE: 20200507
